FAERS Safety Report 4722006-5 (Version None)
Quarter: 2005Q3

REPORT INFORMATION
  Report Type: 
  Country: None (occurrence: None)
  Receive Date: 20050720
  Receipt Date: 20050713
  Transmission Date: 20060218
  Serious: Yes (Other)
  Sender: FDA-Public Use
  Company Number: 2005SI000066

PATIENT

DRUGS (1)
  1. CUBICIN [Suspect]

REACTIONS (1)
  - CONVULSION [None]
